FAERS Safety Report 15524732 (Version 4)
Quarter: 2019Q1

REPORT INFORMATION
  Report Type: Spontaneous
  Country: US (occurrence: US)
  Receive Date: 20181019
  Receipt Date: 20190214
  Transmission Date: 20190417
  Serious: Yes (Hospitalization)
  Sender: FDA-Public Use
  Company Number: US-VERTEX PHARMACEUTICALS-2018-007559

PATIENT
  Sex: Female

DRUGS (15)
  1. XOPENEX [Concomitant]
     Active Substance: LEVALBUTEROL HYDROCHLORIDE
  2. FLUOXETINE [Concomitant]
     Active Substance: FLUOXETINE HYDROCHLORIDE
  3. DULERA [Concomitant]
     Active Substance: FORMOTEROL FUMARATE DIHYDRATE\MOMETASONE FUROATE
  4. CREON [Concomitant]
     Active Substance: PANCRELIPASE AMYLASE\PANCRELIPASE LIPASE\PANCRELIPASE PROTEASE
  5. FLONASE                            /00908302/ [Concomitant]
     Active Substance: MOMETASONE FUROATE
  6. VITAMIN A                          /00056001/ [Concomitant]
     Active Substance: RETINOL
  7. HYDROXYCHLOR [Concomitant]
     Active Substance: HYDROXYCHLOROQUINE
  8. SYMDEKO [Suspect]
     Active Substance: IVACAFTOR\TEZACAFTOR
     Indication: CYSTIC FIBROSIS
     Dosage: 100MG TEZACAFTOR/150MG IVACAFTOR AM; 150MG IVACAFTOR PM
     Route: 048
     Dates: start: 20180523, end: 201901
  9. SMZ [Concomitant]
     Active Substance: SULFAMETHOXAZOLE\TRIMETHOPRIM
  10. THEOPHYLLINE [Concomitant]
     Active Substance: THEOPHYLLINE ANHYDROUS
  11. VITAMIN D                          /00107901/ [Concomitant]
     Active Substance: ERGOCALCIFEROL
  12. PULMOZYME [Concomitant]
     Active Substance: DORNASE ALFA
  13. AZITHROMYCINE [Concomitant]
     Active Substance: AZITHROMYCIN
  14. ALLEGRA [Concomitant]
     Active Substance: FEXOFENADINE HYDROCHLORIDE
  15. MONTELUKAST [Concomitant]
     Active Substance: MONTELUKAST SODIUM

REACTIONS (12)
  - Bronchial secretion retention [Recovered/Resolved]
  - Upper-airway cough syndrome [Not Recovered/Not Resolved]
  - Dehydration [Recovered/Resolved]
  - Insurance issue [Not Recovered/Not Resolved]
  - Heat stroke [Recovered/Resolved]
  - Fatigue [Not Recovered/Not Resolved]
  - Blood potassium decreased [Recovered/Resolved]
  - Productive cough [Not Recovered/Not Resolved]
  - Lethargy [Recovered/Resolved]
  - Product dose omission [Recovered/Resolved]
  - Dysphonia [Recovered/Resolved]
  - Blood pressure decreased [Recovered/Resolved]

NARRATIVE: CASE EVENT DATE: 2018
